FAERS Safety Report 25078385 (Version 2)
Quarter: 2025Q3

REPORT INFORMATION
  Report Type: Spontaneous
  Country: JP (occurrence: JP)
  Receive Date: 20250314
  Receipt Date: 20250730
  Transmission Date: 20251020
  Serious: Yes (Other)
  Sender: MERCK SHARP & DOHME LLC
  Company Number: JP-009507513-2262472

PATIENT
  Age: 40 Year
  Sex: Female

DRUGS (3)
  1. KEYTRUDA [Suspect]
     Active Substance: PEMBROLIZUMAB
     Indication: Uterine cancer
     Dosage: 200 MG, EVERY 3 WEEKS
     Route: 041
     Dates: start: 20250212, end: 20250212
  2. PACLITAXEL [Concomitant]
     Active Substance: PACLITAXEL
     Dosage: 175 MG/M^2, EVERY 3 WEEKS
     Route: 042
     Dates: start: 20250212
  3. CARBOPLATIN [Concomitant]
     Active Substance: CARBOPLATIN
     Route: 042
     Dates: start: 20250212

REACTIONS (2)
  - Renal impairment [Recovering/Resolving]
  - Blood glucose increased [Not Recovered/Not Resolved]

NARRATIVE: CASE EVENT DATE: 20250301
